FAERS Safety Report 8875095 (Version 1)
Quarter: 2012Q4

REPORT INFORMATION
  Report Type: 
  Country: US (occurrence: US)
  Receive Date: 20121029
  Receipt Date: 20121029
  Transmission Date: 20130627
  Serious: No
  Sender: FDA-Public Use
  Company Number: US-PFIZER INC-2012269373

PATIENT
  Age: 76 Year
  Sex: Male
  Weight: 74.38 kg

DRUGS (3)
  1. LIPITOR [Suspect]
     Indication: HIGH CHOLESTEROL
     Dosage: 20 mg, once daily
     Route: 048
     Dates: start: 2001
  2. HYDROXYCHLOROQUINE [Concomitant]
     Dosage: 200 mg
  3. ENBREL [Concomitant]
     Indication: RHEUMATOID ARTHRITIS
     Dosage: UNK

REACTIONS (1)
  - Muscle disorder [Unknown]
